FAERS Safety Report 5657353-6 (Version None)
Quarter: 2008Q1

REPORT INFORMATION
  Report Type: 
  Country: None (occurrence: None)
  Receive Date: 20080310
  Receipt Date: 20080305
  Transmission Date: 20080703
  Serious: Yes (Death, Life-Threatening, Hospitalization, Other)
  Sender: FDA-Public Use
  Company Number: PHBS2007JP17403

PATIENT
  Age: 66 Year
  Sex: Male
  Weight: 66 kg

DRUGS (2)
  1. GLEEVEC [Suspect]
     Indication: GASTROINTESTINAL STROMAL TUMOUR
     Dosage: 400 MG/DAY
     Route: 048
     Dates: start: 20060922, end: 20061013
  2. GLEEVEC [Suspect]
     Dosage: 400MG/D
     Route: 048
     Dates: start: 20061213, end: 20071026

REACTIONS (21)
  - ABDOMINAL PAIN [None]
  - ABDOMINAL WALL DISORDER [None]
  - ADHESIOLYSIS [None]
  - ANAEMIA [None]
  - ASCITES [None]
  - BLOOD PRESSURE DECREASED [None]
  - C-REACTIVE PROTEIN INCREASED [None]
  - DEATH [None]
  - GASTRECTOMY [None]
  - HAEMOGLOBIN DECREASED [None]
  - HYPOKALAEMIA [None]
  - MALIGNANT NEOPLASM PROGRESSION [None]
  - METASTASES TO LIVER [None]
  - PLATELET COUNT DECREASED [None]
  - POSTOPERATIVE ILEUS [None]
  - SHOCK [None]
  - SHOCK HAEMORRHAGIC [None]
  - SMALL INTESTINAL RESECTION [None]
  - TRANSFUSION [None]
  - TUMOUR HAEMORRHAGE [None]
  - WHITE BLOOD CELL COUNT DECREASED [None]
